FAERS Safety Report 9476395 (Version 7)
Quarter: 2015Q2

REPORT INFORMATION
  Report Type: Report from Study
  Country: US (occurrence: US)
  Receive Date: 20130826
  Receipt Date: 20150501
  Transmission Date: 20150821
  Serious: Yes (Hospitalization)
  Sender: FDA-Public Use
  Company Number: US-ROCHE-1265850

PATIENT
  Age: 0 Day
  Sex: Male

DRUGS (16)
  1. OMALIZUMAB [Suspect]
     Active Substance: OMALIZUMAB
     Route: 063
     Dates: start: 20130820
  2. OMALIZUMAB [Suspect]
     Active Substance: OMALIZUMAB
     Route: 063
     Dates: start: 20130917
  3. OMALIZUMAB [Suspect]
     Active Substance: OMALIZUMAB
     Route: 063
     Dates: start: 20140808
  4. OMALIZUMAB [Suspect]
     Active Substance: OMALIZUMAB
     Route: 063
     Dates: start: 20130903
  5. OMALIZUMAB [Suspect]
     Active Substance: OMALIZUMAB
     Route: 063
     Dates: start: 20131015
  6. OMALIZUMAB [Suspect]
     Active Substance: OMALIZUMAB
     Route: 063
     Dates: start: 20131224
  7. OMALIZUMAB [Suspect]
     Active Substance: OMALIZUMAB
     Indication: PRODUCT USED FOR UNKNOWN INDICATION
     Dosage: DATE OF LAST OMALIZUMAB PRIOR TO EVENT: 23/JUL/2013, LAST DOSE: 375 MG
     Route: 064
     Dates: start: 200901
  8. OMALIZUMAB [Suspect]
     Active Substance: OMALIZUMAB
     Route: 063
     Dates: start: 20131029
  9. OMALIZUMAB [Suspect]
     Active Substance: OMALIZUMAB
     Route: 063
     Dates: start: 20150130
  10. OMALIZUMAB [Suspect]
     Active Substance: OMALIZUMAB
     Route: 063
     Dates: start: 20131001
  11. OMALIZUMAB [Suspect]
     Active Substance: OMALIZUMAB
     Route: 063
     Dates: start: 20140121
  12. OMALIZUMAB [Suspect]
     Active Substance: OMALIZUMAB
     Route: 063
     Dates: start: 20140204
  13. OMALIZUMAB [Suspect]
     Active Substance: OMALIZUMAB
     Route: 063
     Dates: start: 20131112
  14. OMALIZUMAB [Suspect]
     Active Substance: OMALIZUMAB
     Route: 063
     Dates: start: 20131210
  15. OMALIZUMAB [Suspect]
     Active Substance: OMALIZUMAB
     Route: 063
     Dates: start: 20140107
  16. OMALIZUMAB [Suspect]
     Active Substance: OMALIZUMAB
     Route: 063
     Dates: start: 20140218

REACTIONS (13)
  - Jaundice neonatal [Recovered/Resolved]
  - Cellulitis [Unknown]
  - Respiratory arrest [Unknown]
  - Exposure during breast feeding [Unknown]
  - Viral infection [Recovered/Resolved]
  - Upper respiratory tract infection [Unknown]
  - Dermatitis diaper [Recovered/Resolved]
  - Cough [Unknown]
  - Ear infection [Recovered/Resolved]
  - Pyrexia [Unknown]
  - Varicella [Unknown]
  - Vomiting [Unknown]
  - Maternal exposure timing unspecified [Unknown]

NARRATIVE: CASE EVENT DATE: 20130726
